FAERS Safety Report 6391135-5 (Version None)
Quarter: 2009Q4

REPORT INFORMATION
  Report Type: 
  Country: None (occurrence: None)
  Receive Date: 20091006
  Receipt Date: 20091006
  Transmission Date: 20100525
  Serious: Yes (Other)
  Sender: FDA-Public Use
  Company Number: None

PATIENT
  Age: 48 Year
  Sex: Female
  Weight: 81.6475 kg

DRUGS (1)
  1. TOVIAZ [Suspect]
     Indication: HYPERTONIC BLADDER
     Dosage: 1 TABLET ONCE A DAY PO
     Route: 048
     Dates: start: 20090929, end: 20090930

REACTIONS (5)
  - ANURIA [None]
  - BLADDER SPASM [None]
  - PAIN [None]
  - PARALYSIS [None]
  - URINARY TRACT INFECTION [None]
